FAERS Safety Report 9694271 (Version 2)
Quarter: 2013Q4

REPORT INFORMATION
  Report Type: Spontaneous
  Country: US (occurrence: US)
  Receive Date: 20131118
  Receipt Date: 20131205
  Transmission Date: 20140711
  Serious: No
  Sender: FDA-Public Use
  Company Number: US-PFIZER INC-2013327115

PATIENT
  Age: 40 Year
  Sex: Female

DRUGS (2)
  1. VISTARIL [Suspect]
     Dosage: UNK
  2. TRAMADOL HYDROCHLORIDE [Suspect]
     Dosage: UNK

REACTIONS (2)
  - Drug hypersensitivity [Unknown]
  - Rash [Unknown]
